FAERS Safety Report 18365851 (Version 1)
Quarter: 2020Q4

REPORT INFORMATION
  Report Type: Other
  Country: GB (occurrence: GB)
  Receive Date: 20201009
  Receipt Date: 20201009
  Transmission Date: 20210114
  Serious: Yes (Congenital Anomaly)
  Sender: FDA-Public Use
  Company Number: GB-EMCURE PHARMACEUTICALS LTD-2020-EPL-001450

PATIENT
  Sex: Female

DRUGS (3)
  1. FOLIC ACID. [Concomitant]
     Active Substance: FOLIC ACID
  2. SERTRALINE [Suspect]
     Active Substance: SERTRALINE HYDROCHLORIDE
     Indication: PREMENSTRUAL DYSPHORIC DISORDER
     Dosage: REDUCING GRADUALLY FROM 4 WEEKS GESTATION TO 12 WEEKS GESTATION WHEN STOPPED
     Route: 064
  3. VITAMINS NOS [Concomitant]
     Active Substance: VITAMINS

REACTIONS (2)
  - Tracheo-oesophageal fistula [Recovering/Resolving]
  - Foetal exposure during pregnancy [Unknown]
